FAERS Safety Report 9602000 (Version 1)
Quarter: 2013Q4

REPORT INFORMATION
  Report Type: Spontaneous
  Country: KR (occurrence: KR)
  Receive Date: 20131007
  Receipt Date: 20131007
  Transmission Date: 20140711
  Serious: Yes (Other)
  Sender: FDA-Public Use
  Company Number: PHHY2013KR110467

PATIENT
  Age: 52 Year
  Sex: Male

DRUGS (1)
  1. EVEROLIMUS [Suspect]
     Dosage: 10 MG, DAILY

REACTIONS (6)
  - Osteonecrosis of jaw [Not Recovered/Not Resolved]
  - Exposed bone in jaw [Not Recovered/Not Resolved]
  - Pain in jaw [Not Recovered/Not Resolved]
  - Swelling face [Recovering/Resolving]
  - Purulent discharge [Not Recovered/Not Resolved]
  - Gingival swelling [Not Recovered/Not Resolved]
